FAERS Safety Report 23369438 (Version 2)
Quarter: 2024Q1

REPORT INFORMATION
  Report Type: Spontaneous
  Country: IT (occurrence: IT)
  Receive Date: 20240105
  Receipt Date: 20240209
  Transmission Date: 20240410
  Serious: Yes (Hospitalization)
  Sender: FDA-Public Use
  Company Number: IT-SUN PHARMACEUTICAL INDUSTRIES LTD-2023RR-425868

PATIENT
  Age: 3 Year
  Sex: Male
  Weight: 15 kg

DRUGS (1)
  1. OLANZAPINE [Suspect]
     Active Substance: OLANZAPINE
     Indication: Accidental exposure to product by child
     Dosage: ACCIDENTAL INTAKE OF 3 TABLETS OF OLANZAPINE 5MG (15 MG TOTAL) IN A SINGLE DOSE
     Route: 048
     Dates: start: 20230830

REACTIONS (3)
  - Accidental exposure to product by child [Recovered/Resolved]
  - Sopor [Recovered/Resolved]
  - Accidental overdose [Recovered/Resolved]

NARRATIVE: CASE EVENT DATE: 20230830
